FAERS Safety Report 23670038 (Version 1)
Quarter: 2024Q1

REPORT INFORMATION
  Report Type: Spontaneous
  Country: FR (occurrence: FR)
  Receive Date: 20240325
  Receipt Date: 20240325
  Transmission Date: 20240410
  Serious: Yes (Hospitalization)
  Sender: FDA-Public Use
  Company Number: FR-NOVPHSZ-PHHY2019FR012962

PATIENT
  Age: 67 Year
  Sex: Male
  Weight: 66 kg

DRUGS (8)
  1. BACTRIM [Suspect]
     Active Substance: SULFAMETHOXAZOLE\TRIMETHOPRIM
     Indication: Prophylaxis
     Dosage: 3 DF, QW
     Route: 048
     Dates: start: 20181007, end: 20181126
  2. CYCLOPHOSPHAMIDE [Suspect]
     Active Substance: CYCLOPHOSPHAMIDE
     Indication: Lymphocytic leukaemia
     Dosage: 1200 MG, QMO
     Route: 048
     Dates: start: 20180930, end: 20181030
  3. CHLORAMBUCIL [Suspect]
     Active Substance: CHLORAMBUCIL
     Indication: Chronic lymphocytic leukaemia
     Dosage: UNK
     Route: 048
     Dates: start: 201807, end: 201809
  4. CHLORAMBUCIL [Suspect]
     Active Substance: CHLORAMBUCIL
     Dosage: UNK (INCONNUE)
     Route: 048
  5. FLUDARA [Suspect]
     Active Substance: FLUDARABINE PHOSPHATE
     Indication: Lymphocytic leukaemia
     Dosage: 210 MG, CYCLIC
     Route: 048
     Dates: start: 20180930, end: 20181030
  6. TRUXIMA [Suspect]
     Active Substance: RITUXIMAB-ABBS
     Indication: Lymphocytic leukaemia
     Dosage: 375 MG/M2, UNK (SELON CYCLE)
     Route: 042
     Dates: start: 20180928, end: 20181026
  7. LEUCOVORIN CALCIUM [Concomitant]
     Active Substance: LEUCOVORIN CALCIUM
     Indication: Prophylaxis
     Dosage: 1 DF, QD
     Route: 048
     Dates: start: 20181007, end: 20181126
  8. VALACYCLOVIR HYDROCHLORIDE [Concomitant]
     Active Substance: VALACYCLOVIR HYDROCHLORIDE
     Indication: Prophylaxis
     Dosage: 1000 MG, QD
     Route: 048
     Dates: start: 20181007, end: 20181126

REACTIONS (2)
  - Neutropenia [Recovered/Resolved]
  - Haemolytic anaemia [Recovered/Resolved]

NARRATIVE: CASE EVENT DATE: 20181130
